FAERS Safety Report 21874820 (Version 2)
Quarter: 2023Q1

REPORT INFORMATION
  Report Type: Spontaneous
  Country: US (occurrence: None)
  Receive Date: 20230117
  Receipt Date: 20230301
  Transmission Date: 20230417
  Serious: Yes (Hospitalization, Other)
  Sender: FDA-Public Use
  Company Number: 2023A006173

PATIENT
  Sex: Female

DRUGS (1)
  1. IMJUDO [Suspect]
     Active Substance: TREMELIMUMAB-ACTL
     Indication: Non-small cell lung cancer
     Route: 042

REACTIONS (1)
  - Myocardial infarction [Unknown]
